FAERS Safety Report 7744653-9 (Version None)
Quarter: 2011Q3

REPORT INFORMATION
  Report Type: 
  Country: None (occurrence: None)
  Receive Date: 20110912
  Receipt Date: 20110830
  Transmission Date: 20111222
  Serious: Yes (Hospitalization, Other)
  Sender: FDA-Public Use
  Company Number: PHHY2011JP62025

PATIENT
  Sex: Male
  Weight: 44 kg

DRUGS (10)
  1. VALSARTAN [Suspect]
     Dosage: 40 MG, QD
     Route: 048
     Dates: start: 20080701, end: 20091005
  2. VALSARTAN [Suspect]
     Dosage: 80 MG, UNK
     Route: 048
  3. CARVEDILOL [Concomitant]
     Dosage: 2.5 MG, UNK
     Route: 048
  4. LASIX [Concomitant]
     Indication: HYPERTENSION
     Dosage: 20 MG, UNK
     Route: 048
     Dates: start: 20091016
  5. LASIX [Concomitant]
     Dosage: 40 MG, UNK
     Route: 048
  6. URSO 250 [Concomitant]
     Dosage: 150 MG, UNK
     Route: 048
     Dates: start: 20091216
  7. CARVEDILOL [Concomitant]
     Indication: HYPERTENSION
     Dosage: 10 MG, UNK
     Route: 048
     Dates: start: 20060418
  8. CARVEDILOL [Concomitant]
     Dosage: 1.25 MG, UNK
     Route: 048
  9. ADALAT [Concomitant]
     Indication: HYPERTENSION
     Dosage: 10 MG, UNK
     Route: 048
     Dates: start: 20060418, end: 20080812
  10. ATELEC [Concomitant]
     Indication: HYPERTENSION
     Dosage: 10 MG, UNK
     Route: 048
     Dates: start: 20080812, end: 20091005

REACTIONS (4)
  - CARDIAC FAILURE CONGESTIVE [None]
  - HEPATIC FUNCTION ABNORMAL [None]
  - HEPATITIS C [None]
  - TRANSAMINASES INCREASED [None]
